FAERS Safety Report 13573655 (Version 1)
Quarter: 2017Q2

REPORT INFORMATION
  Report Type: Spontaneous
  Country: US (occurrence: US)
  Receive Date: 20170523
  Receipt Date: 20170523
  Transmission Date: 20170830
  Serious: Yes (Disabling)
  Sender: FDA-Public Use
  Company Number: None

PATIENT
  Age: 71 Year
  Sex: Female
  Weight: 68.1 kg

DRUGS (13)
  1. DESONIDE. [Concomitant]
     Active Substance: DESONIDE
  2. VIT. D3 [Concomitant]
  3. PROLIA [Suspect]
     Active Substance: DENOSUMAB
     Indication: OSTEOPOROSIS
     Dates: start: 20160314
  4. FLUOCINONIDE. [Concomitant]
     Active Substance: FLUOCINONIDE
  5. TRIAMCINOLONE [Concomitant]
     Active Substance: TRIAMCINOLONE
  6. CLOBETASOL [Concomitant]
     Active Substance: CLOBETASOL
  7. FLONASE [Concomitant]
     Active Substance: FLUTICASONE PROPIONATE
  8. MULTIVITAMIN [Concomitant]
     Active Substance: VITAMINS
  9. OCUVITE [Concomitant]
     Active Substance: VITAMINS
  10. ELIDEL [Concomitant]
     Active Substance: PIMECROLIMUS
  11. TOPICORT [Concomitant]
     Active Substance: DESOXIMETASONE
  12. ZYRTEC [Concomitant]
     Active Substance: CETIRIZINE HYDROCHLORIDE
  13. CALCIUM CITRATE [Concomitant]
     Active Substance: CALCIUM CITRATE

REACTIONS (5)
  - Dysphonia [None]
  - Cough [None]
  - Rash [None]
  - Swelling face [None]
  - Urticaria [None]

NARRATIVE: CASE EVENT DATE: 20160314
